FAERS Safety Report 9713056 (Version 1)
Quarter: 2013Q4

REPORT INFORMATION
  Report Type: Spontaneous
  Country: US (occurrence: US)
  Receive Date: 20131126
  Receipt Date: 20131126
  Transmission Date: 20140711
  Serious: No
  Sender: FDA-Public Use
  Company Number: US-BRISTOL-MYERS SQUIBB COMPANY-19399831

PATIENT
  Age: 69 Year
  Sex: Male

DRUGS (5)
  1. BYDUREON [Suspect]
     Route: 058
     Dates: start: 2013
  2. METFORMIN [Concomitant]
  3. SIMVASTATIN [Concomitant]
  4. ZANTAC [Concomitant]
  5. MULTIVITAMIN [Concomitant]

REACTIONS (2)
  - Rash [Recovering/Resolving]
  - Pruritus [Recovering/Resolving]
